FAERS Safety Report 8286592-3 (Version None)
Quarter: 2012Q2

REPORT INFORMATION
  Report Type: 
  Country: None (occurrence: None)
  Receive Date: 20120416
  Receipt Date: 20120410
  Transmission Date: 20120825
  Serious: Yes (Hospitalization, Other)
  Sender: FDA-Public Use
  Company Number: US-BAYER-2011-059293

PATIENT
  Age: 41 Year
  Sex: Female
  Weight: 109 kg

DRUGS (34)
  1. DROSPIRENONE AND ETHINYL ESTRADIOL [Suspect]
     Dosage: UNK
     Dates: start: 20090211
  2. TUSSIONEX [Concomitant]
     Indication: COUGH
     Dosage: UNK
     Dates: start: 20030101, end: 20080601
  3. MAXALT [Concomitant]
     Indication: MIGRAINE
  4. RELPAX [Concomitant]
     Indication: MIGRAINE
  5. BENADRYL [Concomitant]
  6. NEURONTIN [Concomitant]
     Dosage: 600 MG, UAS NEEDED
     Route: 048
  7. DROSPIRENONE AND ETHINYL ESTRADIOL [Suspect]
     Dosage: UNK
     Dates: start: 20081218
  8. FLUOXETINE [Concomitant]
     Indication: ANXIETY
     Dosage: UNK
     Dates: start: 20010101
  9. VALTREX [Concomitant]
     Indication: GENITAL HERPES
     Dosage: UNK
     Dates: start: 19880101
  10. PROZAC [Concomitant]
  11. LOVENOX [Concomitant]
     Indication: THROMBOSIS PROPHYLAXIS
  12. TOPAMAX [Concomitant]
     Indication: MIGRAINE
  13. YAZ [Suspect]
     Dosage: UNK
     Dates: start: 20090101, end: 20090201
  14. YAZ [Suspect]
     Dosage: UNK
     Dates: start: 20081001, end: 20081201
  15. NEXIUM [Concomitant]
     Indication: GASTROOESOPHAGEAL REFLUX DISEASE
     Dosage: UNK
     Dates: start: 20010101
  16. AZITHROMYCIN [Concomitant]
     Indication: SINUSITIS
     Dosage: UNK
     Dates: start: 20090619, end: 20090625
  17. NEURONTIN [Concomitant]
     Indication: NEUROPATHY PERIPHERAL
     Dosage: 300 MG, UNK
     Route: 048
  18. YAZ [Suspect]
     Dosage: UNK
     Route: 048
     Dates: start: 20090301, end: 20090401
  19. DROSPIRENONE AND ETHINYL ESTRADIOL [Suspect]
     Dosage: UNK
     Dates: start: 20090409, end: 20090705
  20. DROSPIRENONE AND ETHINYL ESTRADIOL [Suspect]
     Dosage: UNK
     Route: 048
     Dates: start: 20080710, end: 20080928
  21. TUSSIONEX [Concomitant]
     Indication: VOCAL CORD DISORDER
  22. ACYCLOVIR [Concomitant]
  23. YASMIN [Suspect]
     Dosage: UNK
     Route: 048
     Dates: start: 20080511, end: 20080610
  24. YASMIN [Suspect]
     Dosage: UNK
     Dates: start: 20010101, end: 20060201
  25. REQUIP [Concomitant]
     Indication: RESTLESS LEGS SYNDROME
     Dosage: UNK
     Dates: start: 20060101
  26. AGGRENOX [Concomitant]
  27. YASMIN [Suspect]
     Dosage: UNK
     Route: 048
     Dates: start: 20080308, end: 20080413
  28. VICODIN [Concomitant]
     Indication: MIGRAINE
     Dosage: UNK
     Dates: start: 20090705
  29. ASPIRIN [Concomitant]
     Dosage: 325 MG DAILY
  30. AMITRIPTYLINE HCL [Concomitant]
     Dosage: UNK
     Dates: start: 20090601
  31. GABAPENTIN [Concomitant]
  32. TOPIRAMATE [Concomitant]
  33. OMEPRAZOLE [Concomitant]
     Indication: GASTROOESOPHAGEAL REFLUX DISEASE
     Dosage: UNK
     Dates: start: 20010101
  34. FIORICET [Concomitant]

REACTIONS (19)
  - PAIN [None]
  - GENERAL PHYSICAL HEALTH DETERIORATION [None]
  - MUSCULAR WEAKNESS [None]
  - PARAESTHESIA [None]
  - CEREBRAL INFARCTION [None]
  - CLUMSINESS [None]
  - CHOLECYSTITIS ACUTE [None]
  - EMOTIONAL DISTRESS [None]
  - ABDOMINAL PAIN UPPER [None]
  - ASTHENIA [None]
  - INJURY [None]
  - HEADACHE [None]
  - MIGRAINE [None]
  - CEREBROVASCULAR ACCIDENT [None]
  - BILIARY COLIC [None]
  - SPEECH DISORDER [None]
  - APRAXIA [None]
  - ANXIETY [None]
  - GALLBLADDER DISORDER [None]
